FAERS Safety Report 6822642-6 (Version None)
Quarter: 2010Q3

REPORT INFORMATION
  Report Type: 
  Country: None (occurrence: None)
  Receive Date: 20100708
  Receipt Date: 20100625
  Transmission Date: 20110219
  Serious: Yes (Hospitalization, Other)
  Sender: FDA-Public Use
  Company Number: JP-SHIRE-SPV1-2010-01191

PATIENT

DRUGS (11)
  1. LANTHANUM CARBONATE [Suspect]
     Indication: HYPERPHOSPHATAEMIA
     Route: 048
     Dates: start: 20090624, end: 20090805
  2. ROCALTROL [Concomitant]
     Dosage: 1.5 UG, UNK
     Route: 042
     Dates: start: 20090102
  3. CINACALCET HYDROCHLORIDE [Concomitant]
     Dosage: THREE DOSES PER DAY (25MG, 50MG AND 25MG)
     Route: 048
     Dates: start: 20090102, end: 20090616
  4. BERIZYM                            /01945301/ [Concomitant]
     Dosage: 2 G, UNK
     Route: 048
  5. DEPAS [Concomitant]
     Dosage: 1 MG, UNK
     Route: 048
  6. ITOROL [Concomitant]
     Dosage: 20 MG, UNK
     Route: 048
  7. LENDORMIN [Concomitant]
     Dosage: .25 MG, UNK
     Route: 048
  8. YODEL [Concomitant]
     Dosage: 80 MG, UNK
     Route: 048
  9. NITRODERM [Concomitant]
     Dosage: 25 MG, UNK
     Route: 062
  10. TAKEPRON [Concomitant]
     Dosage: 15 MG, UNK
     Route: 048
  11. FERRICON [Concomitant]
     Dosage: 50 MG, UNK
     Route: 042
     Dates: start: 20090624

REACTIONS (3)
  - ANAEMIA [None]
  - COLONIC POLYP [None]
  - CONSTIPATION [None]
